FAERS Safety Report 5536837-5 (Version None)
Quarter: 2007Q4

REPORT INFORMATION
  Report Type: 
  Country: None (occurrence: None)
  Receive Date: 20071206
  Receipt Date: 20070321
  Transmission Date: 20080405
  Serious: Yes (Other)
  Sender: FDA-Public Use
  Company Number: US-AMGEN-US215949

PATIENT
  Sex: Male
  Weight: 121.2 kg

DRUGS (14)
  1. ENBREL [Suspect]
     Indication: RHEUMATOID ARTHRITIS
     Route: 058
     Dates: start: 20040312, end: 20070320
  2. NITROGLYCERIN [Concomitant]
     Route: 065
  3. SKELAXIN [Concomitant]
     Route: 065
  4. PREDNISONE TAB [Concomitant]
     Route: 065
  5. FOLIC ACID [Concomitant]
     Route: 065
  6. LIPITOR [Concomitant]
     Route: 065
  7. METHOTREXATE [Concomitant]
     Route: 065
  8. CALCIUM WITH VITAMIN D [Concomitant]
     Route: 065
  9. PROTONIX [Concomitant]
     Route: 065
  10. TOPROL-XL [Concomitant]
     Route: 065
  11. MECLIZINE [Concomitant]
     Route: 065
  12. ACTONEL [Concomitant]
     Route: 065
  13. ASPIRIN [Concomitant]
     Route: 065
  14. MOBIC [Concomitant]
     Route: 065

REACTIONS (1)
  - PROSTATE CANCER [None]
